FAERS Safety Report 8561308-1 (Version None)
Quarter: 2012Q3

REPORT INFORMATION
  Report Type: 
  Country: None (occurrence: None)
  Receive Date: 20120802
  Receipt Date: 20120725
  Transmission Date: 20120928
  Serious: No
  Sender: FDA-Public Use
  Company Number: CA-ABBOTT-12P-028-0958070-00

PATIENT
  Sex: Male

DRUGS (1)
  1. LUPRON DEPOT [Suspect]
     Indication: PROSTATE CANCER
     Route: 030
     Dates: start: 20120323, end: 20120323

REACTIONS (3)
  - BONE LESION [None]
  - BLOOD DISORDER [None]
  - PROSTATIC SPECIFIC ANTIGEN INCREASED [None]
